FAERS Safety Report 10818591 (Version 2)
Quarter: 2015Q2

REPORT INFORMATION
  Report Type: Spontaneous
  Country: US (occurrence: US)
  Receive Date: 20150218
  Receipt Date: 20150619
  Transmission Date: 20150821
  Serious: Yes (Hospitalization, Other)
  Sender: FDA-Public Use
  Company Number: US-GLAXOSMITHKLINE-US2015GSK021653

PATIENT
  Sex: Female

DRUGS (1)
  1. ADVAIR DISKUS [Suspect]
     Active Substance: FLUTICASONE PROPIONATE\SALMETEROL XINAFOATE
     Indication: CHRONIC OBSTRUCTIVE PULMONARY DISEASE
     Dosage: UNK, U
     Route: 065
     Dates: start: 1995

REACTIONS (8)
  - Endotracheal intubation [Unknown]
  - Blood iron decreased [Not Recovered/Not Resolved]
  - Fatigue [Unknown]
  - Staphylococcal infection [Unknown]
  - Oxygen supplementation [Not Recovered/Not Resolved]
  - Overweight [Not Recovered/Not Resolved]
  - Dyspnoea [Not Recovered/Not Resolved]
  - Hospitalisation [Unknown]
